FAERS Safety Report 4309249-X (Version None)
Quarter: 2004Q1

REPORT INFORMATION
  Report Type: 
  Country: None (occurrence: None)
  Receive Date: 20040301
  Receipt Date: 20040213
  Transmission Date: 20041129
  Serious: Yes (Death)
  Sender: FDA-Public Use
  Company Number: 02100-JPN-04-0019

PATIENT
  Age: 78 Year
  Sex: Female

DRUGS (4)
  1. CILOSTAZOL [Suspect]
     Indication: LACUNAR INFARCTION
     Dosage: 200 MG ORAL
     Route: 048
     Dates: start: 20040114, end: 20040124
  2. CILOSTAZOL [Suspect]
     Indication: PROPHYLAXIS
     Dosage: 200 MG ORAL
     Route: 048
     Dates: start: 20040114, end: 20040124
  3. NICERGOLINE [Concomitant]
  4. AZULENE SULFONATE SODIUM/L-GLUTAMINE [Concomitant]

REACTIONS (1)
  - CEREBRAL HAEMORRHAGE [None]
